FAERS Safety Report 10599002 (Version 2)
Quarter: 2015Q1

REPORT INFORMATION
  Report Type: Spontaneous
  Country: US (occurrence: US)
  Receive Date: 20141121
  Receipt Date: 20150127
  Transmission Date: 20150720
  Serious: Yes (Other)
  Sender: FDA-Public Use
  Company Number: US-009507513-1411USA008253

PATIENT
  Sex: Female

DRUGS (7)
  1. NITRO [Concomitant]
     Active Substance: NITROGLYCERIN
  2. FUROSEMIDE. [Concomitant]
     Active Substance: FUROSEMIDE
     Route: 048
  3. COZAAR [Concomitant]
     Active Substance: LOSARTAN POTASSIUM
     Route: 048
  4. CARVEDILOL. [Concomitant]
     Active Substance: CARVEDILOL
  5. JANUVIA [Suspect]
     Active Substance: SITAGLIPTIN PHOSPHATE
     Indication: DIABETES MELLITUS
     Dosage: 100 MG, UNK
     Route: 048
     Dates: start: 20140114, end: 2014
  6. JANUVIA [Suspect]
     Active Substance: SITAGLIPTIN PHOSPHATE
     Dosage: HALF A PILL
     Route: 048
     Dates: start: 2014, end: 201409
  7. GLYBURIDE. [Concomitant]
     Active Substance: GLYBURIDE

REACTIONS (9)
  - Wrong technique in drug usage process [Unknown]
  - Chest discomfort [Recovering/Resolving]
  - Fall [Unknown]
  - Back pain [Recovering/Resolving]
  - Pancreatitis [Recovering/Resolving]
  - Diarrhoea [Recovering/Resolving]
  - Cardiovascular insufficiency [Unknown]
  - Renal disorder [Recovering/Resolving]
  - Blood glucose decreased [Recovering/Resolving]

NARRATIVE: CASE EVENT DATE: 2014
